FAERS Safety Report 9233096 (Version 1)
Quarter: 2013Q2

REPORT INFORMATION
  Report Type: Spontaneous
  Country: US (occurrence: None)
  Receive Date: 20130415
  Receipt Date: 20130415
  Transmission Date: 20140414
  Serious: No
  Sender: FDA-Public Use
  Company Number: None

PATIENT
  Age: 57 Year
  Sex: Female
  Weight: 58.7 kg

DRUGS (1)
  1. ETOPOSIDE [Suspect]
     Indication: SMALL CELL LUNG CANCER
     Route: 042
     Dates: start: 20130402, end: 20130404

REACTIONS (7)
  - Cough [None]
  - Erythema [None]
  - Dyspnoea [None]
  - Nausea [None]
  - Chills [None]
  - Hyperhidrosis [None]
  - Infusion related reaction [None]
